FAERS Safety Report 20682424 (Version 2)
Quarter: 2022Q2

REPORT INFORMATION
  Report Type: Spontaneous
  Country: AR (occurrence: AR)
  Receive Date: 20220407
  Receipt Date: 20220427
  Transmission Date: 20220721
  Serious: Yes (Other)
  Sender: FDA-Public Use
  Company Number: AR-AUROBINDO-AUR-APL-2022-011646

PATIENT
  Age: 81 Year
  Sex: Male

DRUGS (1)
  1. BELEODAQ [Suspect]
     Active Substance: BELINOSTAT
     Indication: T-cell lymphoma refractory
     Dosage: 1000 MILLIGRAM, ONCE A DAY
     Route: 065
     Dates: start: 20220225, end: 20220407

REACTIONS (2)
  - Ascites [Unknown]
  - Disease progression [Unknown]

NARRATIVE: CASE EVENT DATE: 20220323
